FAERS Safety Report 4362315-5 (Version None)
Quarter: 2004Q2

REPORT INFORMATION
  Report Type: 
  Country: None (occurrence: None)
  Receive Date: 20040520
  Receipt Date: 20040520
  Transmission Date: 20050107
  Serious: Yes (Hospitalization)
  Sender: FDA-Public Use
  Company Number: None

PATIENT

DRUGS (2)
  1. LINEZOLID [Suspect]
     Indication: ENTEROCOCCAL BACTERAEMIA
     Dosage: 600 MG IV BID
     Route: 042
     Dates: start: 20040303, end: 20040317
  2. LOVENOX [Suspect]
     Indication: DEEP VENOUS THROMBOSIS PROPHYLAXIS
     Dosage: 30 MG SQ BID
     Route: 058
     Dates: start: 20040310, end: 20040314

REACTIONS (2)
  - CEREBROVASCULAR ACCIDENT [None]
  - THROMBOCYTOPENIA [None]
